FAERS Safety Report 9017813 (Version 1)
Quarter: 2013Q1

REPORT INFORMATION
  Report Type: Spontaneous
  Country: FR (occurrence: FR)
  Receive Date: 20130118
  Receipt Date: 20130118
  Transmission Date: 20140127
  Serious: Yes (Hospitalization)
  Sender: FDA-Public Use
  Company Number: FR-BRISTOL-MYERS SQUIBB COMPANY-17277070

PATIENT
  Age: 78 Year
  Sex: Female

DRUGS (9)
  1. SKENAN [Suspect]
     Indication: PAIN
     Dosage: 1 DF = 2 INTAKE
     Route: 048
     Dates: start: 20121206, end: 20121207
  2. ELIQUIS [Suspect]
     Indication: KNEE ARTHROPLASTY
     Route: 048
     Dates: start: 20121120, end: 20121207
  3. IXPRIM [Suspect]
     Indication: PAIN
     Dosage: 1 DF = 8 INTAKES
     Route: 048
     Dates: start: 20121206
  4. MORPHINE [Suspect]
     Indication: PAIN
     Route: 058
     Dates: start: 20121206, end: 20121207
  5. STAGID [Concomitant]
  6. COTAREG [Concomitant]
  7. JANUVIA [Concomitant]
  8. ATENOLOL [Concomitant]
  9. INIPOMP [Concomitant]

REACTIONS (1)
  - Hepatocellular injury [Recovered/Resolved with Sequelae]
